FAERS Safety Report 9467762 (Version 1)
Quarter: 2013Q3

REPORT INFORMATION
  Report Type: Spontaneous
  Country: BR (occurrence: BR)
  Receive Date: 20130821
  Receipt Date: 20130821
  Transmission Date: 20140515
  Serious: Yes (Other)
  Sender: FDA-Public Use
  Company Number: BR-BIOMARINAP-BR-2013-101323

PATIENT
  Age: 7 Year
  Sex: Male

DRUGS (3)
  1. ALDURAZYME [Suspect]
     Indication: MUCOPOLYSACCHARIDOSIS I
     Dosage: 0.58 MG/KG, QW
     Route: 042
     Dates: start: 20100526
  2. NOVALGINA [Concomitant]
     Indication: PREMEDICATION
  3. LORATADINE [Concomitant]
     Indication: PREMEDICATION

REACTIONS (1)
  - Carpal tunnel syndrome [Recovered/Resolved]
